FAERS Safety Report 7291682-8 (Version None)
Quarter: 2011Q1

REPORT INFORMATION
  Report Type: 
  Country: None (occurrence: None)
  Receive Date: 20110214
  Receipt Date: 20110201
  Transmission Date: 20110831
  Serious: Yes (Other)
  Sender: FDA-Public Use
  Company Number: US-ELI_LILLY_AND_COMPANY-US201011000490

PATIENT
  Age: 57 Year
  Sex: Female
  Weight: 63.039 kg

DRUGS (6)
  1. ANGIOMAX [Concomitant]
     Dosage: 9 ML, UNKNOWN
     Route: 040
     Dates: start: 20100826, end: 20100826
  2. EFFIENT [Suspect]
     Dosage: 10 MG, UNKNOWN
     Dates: start: 20100817, end: 20100825
  3. EFFIENT [Suspect]
     Indication: STENT PLACEMENT
     Dosage: 60 MG, LOADING DOSE
     Dates: start: 20100817, end: 20100817
  4. ASPIRIN [Concomitant]
     Dosage: 325 MG, UNKNOWN
     Dates: start: 20100826
  5. ATORVASTATIN [Concomitant]
     Dosage: 40 MG, UNKNOWN
     Dates: start: 20100826
  6. ANGIOMAX [Concomitant]
     Dosage: 21 ML, UNKNOWN
     Route: 042
     Dates: start: 20100826, end: 20100826

REACTIONS (3)
  - THROMBOSIS IN DEVICE [None]
  - CORONARY ARTERY BYPASS [None]
  - PLATELET COUNT ABNORMAL [None]
